FAERS Safety Report 19382935 (Version 3)
Quarter: 2025Q2

REPORT INFORMATION
  Report Type: Report from Study
  Country: FR (occurrence: FR)
  Receive Date: 20210607
  Receipt Date: 20250505
  Transmission Date: 20250716
  Serious: Yes (Hospitalization, Other)
  Sender: TAKEDA
  Company Number: FR-SHIRE-FR201711180

PATIENT
  Age: 50 Year
  Sex: Male
  Weight: 64 kg

DRUGS (23)
  1. TEDUGLUTIDE [Suspect]
     Active Substance: TEDUGLUTIDE
     Indication: Short-bowel syndrome
     Dosage: 3.3 MILLIGRAM, QD
     Dates: start: 20160317, end: 20181016
  2. TEDUGLUTIDE [Suspect]
     Active Substance: TEDUGLUTIDE
  3. TEDUGLUTIDE [Suspect]
     Active Substance: TEDUGLUTIDE
  4. TEDUGLUTIDE [Suspect]
     Active Substance: TEDUGLUTIDE
  5. CHOLECALCIFEROL [Concomitant]
     Active Substance: CHOLECALCIFEROL
     Indication: Vitamin E
     Dosage: UNK, 1/WEEK
     Dates: start: 201701, end: 2018
  6. NORFLOXACIN [Concomitant]
     Active Substance: NORFLOXACIN
     Indication: Antibiotic therapy
  7. NORFLOXACIN [Concomitant]
     Active Substance: NORFLOXACIN
     Indication: Gastrointestinal microorganism overgrowth
  8. ESOMEPRAZOLE [Concomitant]
     Active Substance: ESOMEPRAZOLE
     Indication: Short-bowel syndrome
     Dosage: 40 MILLIGRAM, QD
     Dates: start: 201701
  9. ESOMEPRAZOLE [Concomitant]
     Active Substance: ESOMEPRAZOLE
     Indication: Gastric ulcer
     Dosage: 2 MILLIGRAM, BID
     Dates: start: 202101, end: 202102
  10. CREON [Concomitant]
     Active Substance: PANCRELIPASE AMYLASE\PANCRELIPASE LIPASE\PANCRELIPASE PROTEASE
     Indication: Short-bowel syndrome
     Dosage: 25000 INTERNATIONAL UNIT, TID
     Dates: start: 201703, end: 201808
  11. VITAMIN A [Concomitant]
     Active Substance: VITAMIN A
     Indication: Vitamin supplementation
     Dosage: 100000 INTERNATIONAL UNIT, MONTHLY
  12. FLAGYL [Concomitant]
     Active Substance: METRONIDAZOLE\METRONIDAZOLE HYDROCHLORIDE
     Indication: Gastrointestinal microorganism overgrowth
  13. CHOLECALCIFEROL [Concomitant]
     Active Substance: CHOLECALCIFEROL
     Indication: Osteopenia
     Dosage: 80000 INTERNATIONAL UNIT, QD
     Dates: start: 201804, end: 2018
  14. VITAMIN B12 [Concomitant]
     Active Substance: CYANOCOBALAMIN
     Indication: Prophylaxis
     Dosage: 1 MILLIGRAM, QD
     Dates: start: 201804
  15. VITAMIN B12 [Concomitant]
     Active Substance: CYANOCOBALAMIN
     Dosage: UNK, MONTHLY
     Dates: start: 2019
  16. URSODIOL [Concomitant]
     Active Substance: URSODIOL
     Indication: Prophylaxis
     Dosage: 500 MILLIGRAM, TID
     Dates: start: 201804, end: 2018
  17. PANCRELIPASE [Concomitant]
     Active Substance: PANCRELIPASE
  18. URSODIOL [Concomitant]
     Active Substance: URSODIOL
     Dosage: 500 MILLIGRAM, TID
     Dates: start: 201810, end: 202101
  19. VITAMIN D [Concomitant]
     Active Substance: VITAMIN D NOS
     Indication: Prophylaxis
     Dosage: 100000 INTERNATIONAL UNIT, 1/WEEK
     Dates: start: 201810
  20. LANSOPRAZOLE [Concomitant]
     Active Substance: LANSOPRAZOLE
     Dosage: 30 MILLIGRAM, QD
     Dates: start: 201901
  21. CHOLECALCIFEROL [Concomitant]
     Active Substance: CHOLECALCIFEROL
     Dosage: 80000 INTERNATIONAL UNIT, 1/WEEK
     Dates: start: 201804
  22. RACECADOTRIL [Concomitant]
     Active Substance: RACECADOTRIL
  23. LOPERAMIDE [Concomitant]
     Active Substance: LOPERAMIDE
     Indication: Short-bowel syndrome

REACTIONS (2)
  - Nephrolithiasis [Recovered/Resolved]
  - Anorectal polyp [Recovered/Resolved]

NARRATIVE: CASE EVENT DATE: 20170512
